FAERS Safety Report 17186653 (Version 1)
Quarter: 2019Q4

REPORT INFORMATION
  Report Type: Spontaneous
  Country: IT (occurrence: IT)
  Receive Date: 20191220
  Receipt Date: 20191220
  Transmission Date: 20200122
  Serious: Yes (Other)
  Sender: FDA-Public Use
  Company Number: IT-MYLANLABS-2019M1126500

PATIENT
  Sex: Male

DRUGS (1)
  1. PREDNISONE. [Suspect]
     Active Substance: PREDNISONE
     Indication: PYOGENIC STERILE ARTHRITIS PYODERMA GANGRENOSUM AND ACNE SYNDROME
     Dosage: UNK

REACTIONS (4)
  - Drug abuse [Unknown]
  - Rebound effect [Recovered/Resolved]
  - Muscle abscess [Recovered/Resolved]
  - Pyogenic sterile arthritis pyoderma gangrenosum and acne syndrome [Recovered/Resolved]
